FAERS Safety Report 11003523 (Version 3)
Quarter: 2017Q4

REPORT INFORMATION
  Report Type: Report from Study
  Country: JP (occurrence: JP)
  Receive Date: 20150409
  Receipt Date: 20171030
  Transmission Date: 20180320
  Serious: Yes (Hospitalization)
  Sender: FDA-Public Use
  Company Number: JP-ROCHE-1560369

PATIENT
  Age: 63 Year
  Sex: Male
  Weight: 58.5 kg

DRUGS (8)
  1. NEXIUM [Concomitant]
     Active Substance: ESOMEPRAZOLE MAGNESIUM
     Indication: GASTRITIS PROPHYLAXIS
     Dosage: THE BEGINNING OF DOSAGE DAY: BEFORE ACQUIRING AGREEMENT
     Route: 048
  2. PREDNISOLONE. [Concomitant]
     Active Substance: PREDNISOLONE
     Indication: STILL^S DISEASE
     Route: 048
     Dates: start: 20150227
  3. TOCILIZUMAB. [Suspect]
     Active Substance: TOCILIZUMAB
     Indication: STILL^S DISEASE
     Route: 041
     Dates: start: 20141010, end: 20141024
  4. PREDNISOLONE. [Concomitant]
     Active Substance: PREDNISOLONE
     Indication: STILL^S DISEASE
     Route: 048
  5. PREDNISOLONE. [Concomitant]
     Active Substance: PREDNISOLONE
     Route: 048
     Dates: start: 20150328
  6. TOCILIZUMAB. [Suspect]
     Active Substance: TOCILIZUMAB
     Indication: STILL^S DISEASE
     Route: 041
     Dates: start: 20141107
  7. TOCILIZUMAB. [Suspect]
     Active Substance: TOCILIZUMAB
     Route: 041
  8. LOXONIN [Concomitant]
     Active Substance: LOXOPROFEN SODIUM
     Indication: STILL^S DISEASE
     Dosage: SINGLE USE AND THE BEGINNING OF DOSAGE DAY: BEFORE ACQUIRING AGREEMENT
     Route: 061

REACTIONS (1)
  - Still^s disease [Recovering/Resolving]

NARRATIVE: CASE EVENT DATE: 20150326
